FAERS Safety Report 10091007 (Version 2)
Quarter: 2014Q2

REPORT INFORMATION
  Report Type: Report from Study
  Country: US (occurrence: US)
  Receive Date: 20140421
  Receipt Date: 20140508
  Transmission Date: 20141212
  Serious: Yes (Other)
  Sender: FDA-Public Use
  Company Number: PHEH2014US007849

PATIENT
  Sex: Female
  Weight: 42 kg

DRUGS (12)
  1. TOBI PODHALER [Suspect]
     Indication: CYSTIC FIBROSIS
     Dosage: 112 MG, BID
     Route: 055
  2. TOBI PODHALER [Suspect]
     Indication: CYSTIC FIBROSIS LUNG
  3. ZITHROMAX [Concomitant]
     Dosage: UNK UKN, UNK
  4. ADVAIR [Concomitant]
     Dosage: UNK UKN, UNK
  5. ZYRTEC [Concomitant]
     Dosage: UNK UKN, UNK
  6. SINGULAIR [Concomitant]
     Dosage: UNK UKN, UNK
  7. KALYDECO [Concomitant]
     Dosage: UNK UKN, UNK
  8. ZOLOFT [Concomitant]
     Dosage: UNK UKN, UNK
  9. KLONOPIN [Concomitant]
     Dosage: UNK UKN, UNK
  10. ALBUTEROL [Concomitant]
     Dosage: UNK UKN, UNK
  11. PULMOZYME [Concomitant]
     Dosage: UNK UKN, UNK
  12. ZENPEP [Concomitant]
     Dosage: UNK UKN, UNK

REACTIONS (3)
  - Asthma [Recovered/Resolved]
  - Feeling abnormal [Recovered/Resolved]
  - Drug ineffective [Recovered/Resolved]
